FAERS Safety Report 7080607-6 (Version None)
Quarter: 2010Q4

REPORT INFORMATION
  Report Type: 
  Country: None (occurrence: None)
  Receive Date: 20101103
  Receipt Date: 20101025
  Transmission Date: 20110411
  Serious: Yes (Hospitalization)
  Sender: FDA-Public Use
  Company Number: AU-ASTRAZENECA-2010SE50444

PATIENT
  Age: 28 Year
  Sex: Female

DRUGS (3)
  1. SEROQUEL [Suspect]
     Route: 048
  2. SEROQUEL [Suspect]
     Dosage: DOUBLE DOSE
     Route: 048
  3. TEMAZEPAM [Suspect]
     Route: 065

REACTIONS (6)
  - FATIGUE [None]
  - PALPITATIONS [None]
  - PARANOIA [None]
  - SCHIZOPHRENIA [None]
  - URINARY TRACT INFECTION [None]
  - VERTIGO [None]
